FAERS Safety Report 10191315 (Version 1)
Quarter: 2014Q2

REPORT INFORMATION
  Report Type: Spontaneous
  Country: GB (occurrence: GB)
  Receive Date: 20140523
  Receipt Date: 20140523
  Transmission Date: 20141212
  Serious: Yes (Congenital Anomaly)
  Sender: FDA-Public Use
  Company Number: GB-MYLANLABS-2014S1011068

PATIENT
  Sex: 0

DRUGS (1)
  1. CITALOPRAM [Suspect]
     Route: 064

REACTIONS (2)
  - Congenital anomaly [Unknown]
  - Exposure during pregnancy [Recovered/Resolved]
